FAERS Safety Report 13570928 (Version 1)
Quarter: 2017Q2

REPORT INFORMATION
  Report Type: Spontaneous
  Country: US (occurrence: US)
  Receive Date: 20170522
  Receipt Date: 20170522
  Transmission Date: 20170830
  Serious: Yes (Hospitalization)
  Sender: FDA-Public Use
  Company Number: None

PATIENT
  Age: 62 Year
  Sex: Male
  Weight: 155.5 kg

DRUGS (8)
  1. EMPAGLIFLOZIN [Suspect]
     Active Substance: EMPAGLIFLOZIN
     Indication: DIABETES MELLITUS
     Route: 048
  2. ENTERIC-COATED ASPIRIN [Concomitant]
     Active Substance: ASPIRIN
  3. EMPAGLIFLOZIN [Concomitant]
     Active Substance: EMPAGLIFLOZIN
  4. CHOLECALCIFEROL [Concomitant]
     Active Substance: CHOLECALCIFEROL
  5. MULTIVITAMIN [Concomitant]
     Active Substance: VITAMINS
  6. PRAVASTATIN. [Concomitant]
     Active Substance: PRAVASTATIN
  7. EXTENDED-RELEASE METFORMIN [Concomitant]
  8. TRIAMCINOLONE [Concomitant]
     Active Substance: TRIAMCINOLONE

REACTIONS (10)
  - Pyrexia [None]
  - Dysuria [None]
  - Ketonuria [None]
  - Myalgia [None]
  - Glycosuria [None]
  - Sepsis [None]
  - Pneumonia [None]
  - Chills [None]
  - Pollakiuria [None]
  - Diabetic ketoacidosis [None]

NARRATIVE: CASE EVENT DATE: 20170421
